FAERS Safety Report 8163928-5 (Version None)
Quarter: 2012Q1

REPORT INFORMATION
  Report Type: 
  Country: None (occurrence: None)
  Receive Date: 20120224
  Receipt Date: 20120215
  Transmission Date: 20120608
  Serious: Yes (Hospitalization)
  Sender: FDA-Public Use
  Company Number: US-JNJFOC-20120209132

PATIENT
  Sex: Female
  Weight: 42.3 kg

DRUGS (3)
  1. REMICADE [Suspect]
     Indication: CROHN'S DISEASE
     Route: 042
     Dates: start: 20090207, end: 20101208
  2. MESALAMINE [Concomitant]
  3. HUMIRA [Concomitant]
     Dates: start: 20101203

REACTIONS (1)
  - CROHN'S DISEASE [None]
